FAERS Safety Report 12840999 (Version 5)
Quarter: 2021Q4

REPORT INFORMATION
  Report Type: Report from Study
  Country: US (occurrence: US)
  Receive Date: 20161012
  Receipt Date: 20211001
  Transmission Date: 20220303
  Serious: Yes (Other)
  Sender: FDA-Public Use
  Company Number: US-TEVA-701954USA

PATIENT
  Age: 27 Year
  Sex: Female

DRUGS (2)
  1. CLARAVIS [Suspect]
     Active Substance: ISOTRETINOIN
     Dosage: 60 MILLIGRAM DAILY;
     Route: 065
     Dates: start: 20160504, end: 20160914
  2. MYORISAN [Suspect]
     Active Substance: ISOTRETINOIN
     Route: 065
     Dates: start: 20160503

REACTIONS (1)
  - Unintended pregnancy [Unknown]

NARRATIVE: CASE EVENT DATE: 20160916
